FAERS Safety Report 17661352 (Version 1)
Quarter: 2020Q2

REPORT INFORMATION
  Report Type: Spontaneous
  Country: US (occurrence: US)
  Receive Date: 20200413
  Receipt Date: 20200413
  Transmission Date: 20200713
  Serious: Yes (Disabling)
  Sender: FDA-Public Use
  Company Number: None

PATIENT
  Age: 78 Year
  Sex: Female
  Weight: 63.9 kg

DRUGS (9)
  1. BENADRYL [Concomitant]
     Active Substance: DIPHENHYDRAMINE HYDROCHLORIDE
  2. AMLODIPINE [Concomitant]
     Active Substance: AMLODIPINE BESYLATE
  3. BABY ASPIRIN [Concomitant]
     Active Substance: ASPIRIN
  4. FOSAMAX [Suspect]
     Active Substance: ALENDRONATE SODIUM
  5. BONIVA [Suspect]
     Active Substance: IBANDRONATE SODIUM
  6. PREDNISONE. [Suspect]
     Active Substance: PREDNISONE
  7. PROLIA [Suspect]
     Active Substance: DENOSUMAB
     Indication: OSTEOPENIA
     Dosage: ?          OTHER FREQUENCY:1 EVERY 6 MOS.;?
     Route: 058
     Dates: start: 20190409, end: 20191013
  8. ESTRODIAL [Concomitant]
     Active Substance: ESTRADIOL
  9. CALCIUM + MAGNESIUM+ZINC [Concomitant]

REACTIONS (22)
  - Headache [None]
  - Limb discomfort [None]
  - Fatigue [None]
  - Bone pain [None]
  - Feeling abnormal [None]
  - Pain in jaw [None]
  - Dizziness [None]
  - Hyperaesthesia teeth [None]
  - Hypoaesthesia [None]
  - Muscle spasms [None]
  - Pain [None]
  - Myalgia [None]
  - Vision blurred [None]
  - Chills [None]
  - C-reactive protein increased [None]
  - Heart rate irregular [None]
  - Alopecia [None]
  - Paraesthesia [None]
  - Nausea [None]
  - Dyspepsia [None]
  - Decreased appetite [None]
  - Red blood cell sedimentation rate increased [None]

NARRATIVE: CASE EVENT DATE: 20191023
